FAERS Safety Report 16458711 (Version 1)
Quarter: 2019Q2

REPORT INFORMATION
  Report Type: Spontaneous
  Country: US (occurrence: US)
  Receive Date: 20190620
  Receipt Date: 20190620
  Transmission Date: 20190711
  Serious: No
  Sender: FDA-Public Use
  Company Number: US-THERAPEUTICSMD-2019TMD00549

PATIENT
  Sex: Female
  Weight: 68.03 kg

DRUGS (8)
  1. IMVEXXY [Suspect]
     Active Substance: ESTRADIOL
     Indication: VULVOVAGINAL DRYNESS
     Dosage: 4 ?G, 2X/WEEK BEFORE BED
     Route: 067
  2. IMVEXXY [Suspect]
     Active Substance: ESTRADIOL
     Indication: POSTMENOPAUSE
     Dosage: 4 ?G, 2X/WEEK IN THE MORNING
     Route: 067
  3. VITAMIN E [Concomitant]
     Active Substance: .ALPHA.-TOCOPHEROL
  4. MULTIVITAMIN [Concomitant]
     Active Substance: VITAMINS
  5. VITAMIN B12 [Concomitant]
     Active Substance: CYANOCOBALAMIN
  6. PROBIOTIC [Concomitant]
     Active Substance: PROBIOTICS NOS
  7. BIOTIN FOR NAILS/HAIR [Concomitant]
  8. FISH OIL [Concomitant]
     Active Substance: FISH OIL

REACTIONS (3)
  - Off label use [Not Recovered/Not Resolved]
  - Insomnia [Not Recovered/Not Resolved]
  - Hot flush [Not Recovered/Not Resolved]
